FAERS Safety Report 25213674 (Version 4)
Quarter: 2025Q3

REPORT INFORMATION
  Report Type: Spontaneous
  Country: CA (occurrence: CA)
  Receive Date: 20250418
  Receipt Date: 20250702
  Transmission Date: 20251021
  Serious: Yes (Death, Hospitalization, Other)
  Sender: PFIZER
  Company Number: CA-PFIZER INC-202500070807

PATIENT
  Age: 69 Year
  Sex: Female

DRUGS (1)
  1. RUXIENCE [Suspect]
     Active Substance: RITUXIMAB-PVVR
     Indication: Rheumatoid arthritis
     Route: 042
     Dates: start: 20240507

REACTIONS (6)
  - Death [Fatal]
  - Urinary tract infection [Unknown]
  - Abdominal pain [Unknown]
  - Complication associated with device [Unknown]
  - Pneumonia [Unknown]
  - Loss of consciousness [Unknown]
